FAERS Safety Report 4932686-7 (Version None)
Quarter: 2006Q1

REPORT INFORMATION
  Report Type: 
  Country: None (occurrence: None)
  Receive Date: 20060301
  Receipt Date: 20060216
  Transmission Date: 20060701
  Serious: Yes (Death, Hospitalization)
  Sender: FDA-Public Use
  Company Number: 2006011233

PATIENT
  Age: 57 Year
  Sex: Male
  Weight: 56 kg

DRUGS (6)
  1. SUTENT [Suspect]
     Indication: METASTATIC RENAL CELL CARCINOMA
     Dosage: 50 MG (50 MG, EVERY DAY), ORAL
     Route: 048
     Dates: start: 20051221, end: 20060119
  2. TRAMOL (TRAMADOL HYDROCHLORIDE) [Concomitant]
  3. NOVALGIN (METAMIZOLE SODIUM) [Concomitant]
  4. LASIX [Concomitant]
  5. PANTOPRAZOLE SODIUM [Concomitant]
  6. MORIL (BISMUTH SUBNITRATE, FRANGULA EXTRACT, MAGNESIUM CARABONATE, SOD [Concomitant]

REACTIONS (3)
  - APHASIA [None]
  - HAEMORRHAGE INTRACRANIAL [None]
  - METASTASES TO CENTRAL NERVOUS SYSTEM [None]
